FAERS Safety Report 17442313 (Version 2)
Quarter: 2024Q3

REPORT INFORMATION
  Report Type: Spontaneous
  Country: IT (occurrence: IT)
  Receive Date: 20200220
  Receipt Date: 20240821
  Transmission Date: 20241017
  Serious: Yes (Hospitalization, Other)
  Sender: MYLAN
  Company Number: IT-HORIZON-PRE-0555-2019

PATIENT
  Age: 59 Year
  Sex: Male
  Weight: 88.7 kg

DRUGS (11)
  1. PREDNISONE [Suspect]
     Active Substance: PREDNISONE
     Indication: Focal segmental glomerulosclerosis
     Dosage: 25 MILLIGRAM, QD
     Route: 065
     Dates: start: 199610, end: 199711
  2. PREDNISONE [Suspect]
     Active Substance: PREDNISONE
     Dosage: 1 MILLIGRAM/KILOGRAM, QD (24MG/48H 15 MONTHS THEN 1MG/KG/DAY FOR 8)
     Route: 065
     Dates: start: 199803
  3. CYCLOSPORINE [Suspect]
     Active Substance: CYCLOSPORINE
     Indication: Focal segmental glomerulosclerosis
     Dosage: 3 MILLIGRAM/KILOGRAM, QD  [FOR 11 MONTHS]
     Route: 048
     Dates: start: 199610, end: 199711
  4. CYCLOPHOSPHAMIDE [Suspect]
     Active Substance: CYCLOPHOSPHAMIDE
     Indication: Focal segmental glomerulosclerosis
     Dosage: 100 MILLIGRAM, QD, 100 MG, DAILY [100MG/DAY FOR 6 MONTHS]
     Route: 065
     Dates: start: 199803, end: 199810
  5. FUROSEMIDE [Suspect]
     Active Substance: FUROSEMIDE
     Indication: Product used for unknown indication
     Dosage: UNK
     Route: 042
     Dates: start: 199801, end: 1998
  6. ALLOPURINOL [Concomitant]
     Active Substance: ALLOPURINOL
     Dosage: UNK
     Route: 065
  7. FUROSEMIDE [Concomitant]
     Active Substance: FUROSEMIDE
     Dosage: 50 MILLIGRAM, QD (50 MG/DAY)
     Route: 048
     Dates: start: 199510
  8. ENALAPRIL [Concomitant]
     Active Substance: ENALAPRIL
     Dosage: 10 MILLIGRAM, QD (10 MG/DAY)
     Route: 065
     Dates: start: 199510
  9. ENALAPRIL [Concomitant]
     Active Substance: ENALAPRIL
     Dosage: 20 MILLIGRAM, QD (20 MG/DAY)
     Route: 048
     Dates: start: 199510
  10. NIFEDIPINE [Concomitant]
     Active Substance: NIFEDIPINE
     Dosage: UNK
     Route: 065
  11. ATENOLOL [Concomitant]
     Active Substance: ATENOLOL
     Dosage: UNK
     Route: 065

REACTIONS (14)
  - Kaposi^s sarcoma [Recovered/Resolved]
  - Nephropathy toxic [Unknown]
  - Occult blood positive [Unknown]
  - Blood creatinine increased [Unknown]
  - Skin lesion [Recovered/Resolved]
  - Rash [Recovered/Resolved]
  - Generalised oedema [Unknown]
  - Tubulointerstitial nephritis [Unknown]
  - Anaemia [Unknown]
  - Hypertension [Unknown]
  - Glomerular filtration rate decreased [Unknown]
  - Pruritus [Recovered/Resolved]
  - Oliguria [Unknown]
  - Eosinophilia [Unknown]

NARRATIVE: CASE EVENT DATE: 19981001
